FAERS Safety Report 20654009 (Version 1)
Quarter: 2022Q1

REPORT INFORMATION
  Report Type: Spontaneous
  Country: IT (occurrence: IT)
  Receive Date: 20220330
  Receipt Date: 20220330
  Transmission Date: 20220423
  Serious: Yes (Death, Other)
  Sender: FDA-Public Use
  Company Number: IT-MYLANLABS-2022M1016894

PATIENT
  Sex: Male

DRUGS (1)
  1. TRAMADOL [Suspect]
     Active Substance: TRAMADOL
     Indication: Pain
     Dosage: UNK

REACTIONS (5)
  - Overdose [Fatal]
  - Drug abuse [Fatal]
  - Oedema [Fatal]
  - Myocardial fibrosis [Fatal]
  - Pulmonary oedema [Fatal]
